FAERS Safety Report 10283146 (Version 1)
Quarter: 2014Q3

REPORT INFORMATION
  Report Type: Spontaneous
  Country: ES (occurrence: ES)
  Receive Date: 20140708
  Receipt Date: 20140708
  Transmission Date: 20150326
  Serious: Yes (Hospitalization)
  Sender: FDA-Public Use
  Company Number: ES-ACCORD-024602

PATIENT
  Age: 52 Year
  Sex: Male
  Weight: 64 kg

DRUGS (3)
  1. ACCORD IRINOTECAN [Suspect]
     Active Substance: IRINOTECAN
     Indication: PANCREATIC NEOPLASM
     Dosage: PATIENT TOOK DRUG ON 15-MAY-2014. DAILY DOSAGE: 300 MG/15 DAYS
     Route: 042
     Dates: start: 20140515, end: 20140515
  2. DEXAMETHASONE. [Concomitant]
     Active Substance: DEXAMETHASONE
     Dosage: DAILY DOSAGE: 4 MG TO 0-4 MG
     Route: 048
  3. BOREA [Concomitant]
     Indication: CACHEXIA
     Dosage: DAILY DOSAGE: 1 SACHET/DAY
     Route: 048

REACTIONS (8)
  - Malaise [Recovered/Resolved]
  - Paraesthesia oral [Recovered/Resolved]
  - Dysarthria [Recovered/Resolved]
  - Off label use [Unknown]
  - Feeling hot [Recovered/Resolved]
  - Abdominal pain [Recovered/Resolved]
  - Tongue disorder [Recovered/Resolved]
  - Nausea [Recovered/Resolved]

NARRATIVE: CASE EVENT DATE: 20140515
